FAERS Safety Report 18231296 (Version 1)
Quarter: 2020Q3

REPORT INFORMATION
  Report Type: Spontaneous
  Country: DE (occurrence: DE)
  Receive Date: 20200904
  Receipt Date: 20200904
  Transmission Date: 20201103
  Serious: Yes (Hospitalization)
  Sender: FDA-Public Use
  Company Number: DE-HETERO-HET2020DE00990

PATIENT
  Age: 14 Year
  Sex: Female
  Weight: 61 kg

DRUGS (3)
  1. LAMOTRIGIN [Suspect]
     Active Substance: LAMOTRIGINE
     Dosage: 2 DF DOSAGE (200 MG) FORM EVERY DAYS 2 SEPARATED DOSESUNK
     Route: 048
  2. LEVETIRACETAM. [Suspect]
     Active Substance: LEVETIRACETAM
     Indication: PARTIAL SEIZURES
     Dosage: 2 DOSAGE FORM, QD (2 DF DOSAGE FORM EVERY DAYS 2 SEPARATED DOSES )
     Route: 048
  3. LAMOTRIGIN [Suspect]
     Active Substance: LAMOTRIGINE
     Indication: PARTIAL SEIZURES
     Dosage: 2 DOSAGE FORM, QD, 50 MG (2 DF DOSAGE FORM EVERY DAYS 2 SEPARATED DOSES)
     Route: 048

REACTIONS (1)
  - Generalised tonic-clonic seizure [Recovered/Resolved]

NARRATIVE: CASE EVENT DATE: 20190318
